FAERS Safety Report 7581014-X (Version None)
Quarter: 2011Q2

REPORT INFORMATION
  Report Type: 
  Country: None (occurrence: None)
  Receive Date: 20110629
  Receipt Date: 20110621
  Transmission Date: 20111010
  Serious: Yes (Disabling, Other)
  Sender: FDA-Public Use
  Company Number: US-CELGENEUS-163-21880-11051894

PATIENT
  Sex: Male

DRUGS (2)
  1. PREDNISONE [Concomitant]
     Indication: CASTLEMAN'S DISEASE
     Dosage: 5 MILLIGRAM
     Route: 048
  2. REVLIMID [Suspect]
     Indication: CASTLEMAN'S DISEASE
     Dosage: 15 MILLIGRAM
     Route: 048

REACTIONS (2)
  - BRONCHOSTENOSIS [None]
  - TRACHEAL STENOSIS [None]
